FAERS Safety Report 7012272-8 (Version None)
Quarter: 2010Q3

REPORT INFORMATION
  Report Type: 
  Country: None (occurrence: None)
  Receive Date: 20100910
  Receipt Date: 20091005
  Transmission Date: 20110219
  Serious: Yes (Other)
  Sender: FDA-Public Use
  Company Number: 1000009308

PATIENT
  Age: 32 Year
  Sex: Male

DRUGS (4)
  1. CITALOPRAM HYDROBROMIDE [Suspect]
  2. ZYPREXA [Suspect]
     Indication: SCHIZOPHRENIA
     Dosage: (20 MG)
  3. GEODON [Concomitant]
  4. HYDROXYZINE [Concomitant]

REACTIONS (1)
  - THROMBOSIS [None]
